FAERS Safety Report 4689449-X (Version None)
Quarter: 2005Q2

REPORT INFORMATION
  Report Type: 
  Country: None (occurrence: None)
  Receive Date: 20050311
  Receipt Date: 20050311
  Transmission Date: 20051028
  Serious: Yes (Other)
  Sender: FDA-Public Use
  Company Number: None

PATIENT
  Age: 79 Year
  Sex: Male
  Weight: 73.8456 kg

DRUGS (6)
  1. METFORMIN HCL EXTENDED RELEASE [Suspect]
     Indication: DIABETES MELLITUS
     Dosage: 1000MG IN AM 1500 + 2000MG IN PM
     Dates: start: 20040901, end: 20041101
  2. GLYBURIDE MICRONIZIED [Concomitant]
  3. ASPIRIN [Concomitant]
  4. NORVASC [Concomitant]
  5. ZOCOR [Concomitant]
  6. RANITIDINE HCL [Concomitant]

REACTIONS (2)
  - DIABETES MELLITUS INADEQUATE CONTROL [None]
  - STOOL ANALYSIS ABNORMAL [None]
